FAERS Safety Report 19068713 (Version 1)
Quarter: 2021Q1

REPORT INFORMATION
  Report Type: Spontaneous
  Country: GB (occurrence: GB)
  Receive Date: 20210329
  Receipt Date: 20210329
  Transmission Date: 20210420
  Serious: Yes (Disabling, Other)
  Sender: FDA-Public Use
  Company Number: GB-MYLANLABS-2021M1018089

PATIENT
  Age: 67 Year
  Sex: Female
  Weight: 74.83 kg

DRUGS (3)
  1. GINKGO BILOBA EXTRACT [Concomitant]
     Active Substance: GINKGO
     Indication: ILL-DEFINED DISORDER
     Dosage: UNK
  2. RAMIPRIL. [Suspect]
     Active Substance: RAMIPRIL
     Indication: HYPERTENSION
     Dosage: 2.5 MILLIGRAM
     Route: 048
     Dates: start: 20210316, end: 20210319
  3. LERCANIDIPINE [Suspect]
     Active Substance: LERCANIDIPINE
     Indication: HYPERTENSION
     Dosage: 10 MILLIGRAM
     Route: 048
     Dates: start: 20210310, end: 20210319

REACTIONS (6)
  - Illness [Recovered/Resolved]
  - Blood pressure increased [Unknown]
  - Vertigo [Not Recovered/Not Resolved]
  - Nausea [Not Recovered/Not Resolved]
  - Heart rate increased [Recovered/Resolved]
  - Presyncope [Recovering/Resolving]

NARRATIVE: CASE EVENT DATE: 20210312
